FAERS Safety Report 19845449 (Version 1)
Quarter: 2021Q3

REPORT INFORMATION
  Report Type: Spontaneous
  Country: US (occurrence: US)
  Receive Date: 20210916
  Receipt Date: 20210916
  Transmission Date: 20211014
  Serious: Yes (Disabling)
  Sender: FDA-Public Use
  Company Number: None

PATIENT
  Age: 47 Year
  Sex: Male
  Weight: 94.5 kg

DRUGS (1)
  1. DAPSONE, 25 MG [Suspect]
     Active Substance: DAPSONE
     Indication: SKIN DISORDER

REACTIONS (6)
  - Disability [None]
  - Blindness [None]
  - Retinal injury [None]
  - Toxicity to various agents [None]
  - Loss of employment [None]
  - Visual impairment [None]

NARRATIVE: CASE EVENT DATE: 20130601
